FAERS Safety Report 18833878 (Version 7)
Quarter: 2022Q3

REPORT INFORMATION
  Report Type: Report from Study
  Country: FR (occurrence: None)
  Receive Date: 20210203
  Receipt Date: 20220928
  Transmission Date: 20221027
  Serious: Yes (Hospitalization)
  Sender: FDA-Public Use
  Company Number: FR-EISAI MEDICAL RESEARCH-EC-2021-087368

PATIENT
  Age: 77 Year
  Sex: Female
  Weight: 45 kg

DRUGS (11)
  1. LENVATINIB [Suspect]
     Active Substance: LENVATINIB
     Indication: Gastric cancer
     Route: 048
     Dates: start: 20201203, end: 20210127
  2. PEMBROLIZUMAB [Suspect]
     Active Substance: PEMBROLIZUMAB
     Indication: Gastric cancer
     Route: 041
     Dates: start: 20201203, end: 20210114
  3. SODIUM CARBONATE [Concomitant]
     Active Substance: SODIUM CARBONATE
     Dates: start: 20201203
  4. RACECADOTRIL [Concomitant]
     Active Substance: RACECADOTRIL
     Dates: start: 20201203
  5. ACETAMINOPHEN [Concomitant]
     Active Substance: ACETAMINOPHEN
     Dates: start: 20201203
  6. CERNEVIT [Concomitant]
     Active Substance: VITAMINS
     Dates: start: 20201203
  7. AMINO ACIDS\DEXTROSE\ELECTROLYTES NOS\SOYBEAN OIL [Concomitant]
     Active Substance: AMINO ACIDS\DEXTROSE\ELECTROLYTES NOS\SOYBEAN OIL
     Dates: start: 20201203
  8. METOCLOPRAMIDE [Concomitant]
     Active Substance: METOCLOPRAMIDE
     Dates: start: 20201203
  9. PHLOROGLUCINOL [Concomitant]
     Active Substance: PHLOROGLUCINOL
     Dates: start: 20201214
  10. LIPIKAR BAUME AP+ [Concomitant]
     Dates: start: 20201222
  11. CANDESARTAN [Concomitant]
     Active Substance: CANDESARTAN
     Dates: start: 20210105

REACTIONS (1)
  - Thrombotic microangiopathy [Recovered/Resolved]

NARRATIVE: CASE EVENT DATE: 20210128
